FAERS Safety Report 18079750 (Version 1)
Quarter: 2020Q3

REPORT INFORMATION
  Report Type: Report from Study
  Country: US (occurrence: US)
  Receive Date: 20200728
  Receipt Date: 20200728
  Transmission Date: 20201103
  Serious: Yes (Other)
  Sender: FDA-Public Use
  Company Number: US-MYLANLABS-2020M1066752

PATIENT
  Age: 35 Year
  Sex: Female
  Weight: 64 kg

DRUGS (1)
  1. GLATIRAMER ACETATE INJECTION [Suspect]
     Active Substance: GLATIRAMER ACETATE
     Indication: RELAPSING-REMITTING MULTIPLE SCLEROSIS
     Dosage: 40 MILLIGRAM, 3XW
     Route: 058
     Dates: start: 20200511

REACTIONS (6)
  - Injection site pain [Recovered/Resolved]
  - Shock [Recovering/Resolving]
  - Injection site mass [Recovering/Resolving]
  - Injection site erythema [Recovering/Resolving]
  - Injection site rash [Recovering/Resolving]
  - Injection site pruritus [Recovering/Resolving]

NARRATIVE: CASE EVENT DATE: 202005
